FAERS Safety Report 13031629 (Version 2)
Quarter: 2016Q4

REPORT INFORMATION
  Report Type: Spontaneous
  Country: JP (occurrence: JP)
  Receive Date: 20161215
  Receipt Date: 20161220
  Transmission Date: 20170207
  Serious: Yes (Other)
  Sender: FDA-Public Use
  Company Number: JP-PFIZER INC-2016576088

PATIENT
  Age: 38 Year
  Sex: Female
  Weight: 83 kg

DRUGS (15)
  1. ELPLAT [Suspect]
     Active Substance: OXALIPLATIN
     Dosage: 120 MG, 1X/DAY
     Route: 041
     Dates: start: 20140220, end: 20140220
  2. CAMPTO [Suspect]
     Active Substance: IRINOTECAN
     Indication: PANCREATIC CARCINOMA
     Dosage: 340 MG, 1X/DAY (177.8 MG/M2)
     Route: 041
     Dates: start: 20140129, end: 20140129
  3. CAMPTO [Suspect]
     Active Substance: IRINOTECAN
     Dosage: 280 MG, 1X/DAY
     Route: 041
     Dates: start: 20140319, end: 20140319
  4. ELPLAT [Suspect]
     Active Substance: OXALIPLATIN
     Indication: PANCREATIC CARCINOMA
     Dosage: 160 MG, 1X/DAY (83.7 MG/M2)
     Route: 041
     Dates: start: 20140129, end: 20140129
  5. CAMPTO [Suspect]
     Active Substance: IRINOTECAN
     Dosage: 280 MG, 1X/DAY
     Route: 041
     Dates: start: 20140402, end: 20140402
  6. ELPLAT [Suspect]
     Active Substance: OXALIPLATIN
     Dosage: 120 MG, 1X/DAY
     Route: 041
     Dates: start: 20140416, end: 20140416
  7. LEVOFOLINATE CALCIUM [Concomitant]
     Active Substance: LEVOLEUCOVORIN CALCIUM
     Dosage: 375 MG/BODY (196.1 MG/M2)
     Route: 041
     Dates: start: 20140129, end: 20140416
  8. ELPLAT [Suspect]
     Active Substance: OXALIPLATIN
     Dosage: 120 MG, 1X/DAY
     Route: 041
     Dates: start: 20140319, end: 20140319
  9. 5-FU /00098801/ [Concomitant]
     Active Substance: FLUOROURACIL
     Dosage: 4500 MG/BODY/D1-2 (2353.6 MG/M2/D1-2)
     Route: 041
     Dates: start: 20140129, end: 20140416
  10. CAMPTO [Suspect]
     Active Substance: IRINOTECAN
     Dosage: 280 MG, 1X/DAY
     Route: 041
     Dates: start: 20140416, end: 20140416
  11. CAMPTO [Suspect]
     Active Substance: IRINOTECAN
     Dosage: 280 MG, 1X/DAY
     Route: 041
     Dates: start: 20140220, end: 20140220
  12. CAMPTO [Suspect]
     Active Substance: IRINOTECAN
     Dosage: 280 MG, 1X/DAY
     Route: 041
     Dates: start: 20140305, end: 20140305
  13. ELPLAT [Suspect]
     Active Substance: OXALIPLATIN
     Dosage: 120 MG, 1X/DAY
     Route: 041
     Dates: start: 20140305, end: 20140305
  14. ELPLAT [Suspect]
     Active Substance: OXALIPLATIN
     Dosage: 120 MG, 1X/DAY
     Route: 041
     Dates: start: 20140402, end: 20140402
  15. 5-FU /00098801/ [Concomitant]
     Active Substance: FLUOROURACIL
     Dosage: 750 MG/BODY (392.3 MG/M2)
     Route: 040
     Dates: start: 20140129, end: 20140416

REACTIONS (10)
  - Platelet count decreased [Not Recovered/Not Resolved]
  - Pyrexia [Recovered/Resolved]
  - Nausea [Recovered/Resolved]
  - Diarrhoea [Recovered/Resolved]
  - White blood cell count decreased [Recovering/Resolving]
  - Stomatitis [Recovered/Resolved]
  - Febrile neutropenia [Recovered/Resolved]
  - Neutrophil count decreased [Recovering/Resolving]
  - Peripheral sensory neuropathy [Recovered/Resolved]
  - Neoplasm progression [Unknown]

NARRATIVE: CASE EVENT DATE: 20140212
